FAERS Safety Report 15585377 (Version 1)
Quarter: 2018Q4

REPORT INFORMATION
  Report Type: Spontaneous
  Country: US (occurrence: US)
  Receive Date: 20181105
  Receipt Date: 20181105
  Transmission Date: 20190205
  Serious: Yes (Other)
  Sender: FDA-Public Use
  Company Number: US-TEVA-2018-US-971761

PATIENT
  Sex: Female

DRUGS (1)
  1. PHENTERMINE HCL [Suspect]
     Active Substance: PHENTERMINE HYDROCHLORIDE
     Indication: WEIGHT DECREASED
     Dosage: DOSAGE:37.5
     Route: 048
     Dates: start: 201202, end: 201206

REACTIONS (4)
  - Aortic valve disease [Unknown]
  - Aortic valve incompetence [Unknown]
  - Depression [Unknown]
  - Heart valve incompetence [Unknown]
